FAERS Safety Report 7753479-1 (Version None)
Quarter: 2011Q3

REPORT INFORMATION
  Report Type: 
  Country: None (occurrence: None)
  Receive Date: 20110915
  Receipt Date: 20110815
  Transmission Date: 20111222
  Serious: Yes (Other)
  Sender: FDA-Public Use
  Company Number: PHHY2011US54675

PATIENT

DRUGS (1)
  1. VIVELLE-DOT [Suspect]
     Dosage: 0.0375 MG, UNK
     Route: 062
     Dates: start: 20110519

REACTIONS (7)
  - MOOD SWINGS [None]
  - ANXIETY [None]
  - FATIGUE [None]
  - DEPRESSION [None]
  - POOR QUALITY SLEEP [None]
  - DISTURBANCE IN ATTENTION [None]
  - CRYING [None]
